FAERS Safety Report 23657761 (Version 1)
Quarter: 2024Q1

REPORT INFORMATION
  Report Type: Spontaneous
  Country: AU (occurrence: AU)
  Receive Date: 20240321
  Receipt Date: 20240321
  Transmission Date: 20240410
  Serious: Yes (Other)
  Sender: FDA-Public Use
  Company Number: AU-SANDOZ-SDZ2024AU029533

PATIENT
  Age: 20 Year
  Sex: Male

DRUGS (5)
  1. .DELTA.9-TETRAHYDROCANNABINOL\CANNABIDIOL\HERBALS [Concomitant]
     Active Substance: .DELTA.9-TETRAHYDROCANNABINOL\CANNABIDIOL\HERBALS
     Indication: Product used for unknown indication
     Route: 065
  2. MELATONIN [Interacting]
     Active Substance: MELATONIN
     Indication: Bipolar disorder
     Dosage: 10 MG
     Route: 065
  3. FLUOXETINE [Interacting]
     Active Substance: FLUOXETINE HYDROCHLORIDE
     Indication: Bipolar disorder
     Dosage: UNK
     Route: 065
  4. LITHIUM CARBONATE [Interacting]
     Active Substance: LITHIUM CARBONATE
     Indication: Bipolar disorder
     Route: 065
  5. NABIXIMOLS [Interacting]
     Active Substance: NABIXIMOLS
     Indication: Product used for unknown indication
     Route: 048

REACTIONS (5)
  - Drug interaction [Unknown]
  - Generalised tonic-clonic seizure [Unknown]
  - Off label use [Unknown]
  - Overdose [Unknown]
  - Serotonin syndrome [Unknown]
